FAERS Safety Report 9429121 (Version 1)
Quarter: 2013Q3

REPORT INFORMATION
  Report Type: Spontaneous
  Country: ES (occurrence: ES)
  Receive Date: 20130730
  Receipt Date: 20130730
  Transmission Date: 20140515
  Serious: Yes (Hospitalization)
  Sender: FDA-Public Use
  Company Number: ES-JNJFOC-20130716877

PATIENT
  Age: 77 Year
  Sex: Male
  Weight: 82.3 kg

DRUGS (20)
  1. TRAMADOL HYDROCHLORIDE [Suspect]
     Indication: PAIN
     Route: 065
     Dates: start: 20130528, end: 20130530
  2. PEMETREXED [Suspect]
     Indication: NON-SMALL CELL LUNG CANCER
     Route: 042
     Dates: start: 20130528
  3. CARBOPLATIN [Suspect]
     Indication: NON-SMALL CELL LUNG CANCER
     Route: 042
     Dates: start: 20130528
  4. ACETYLCYSTEINE [Concomitant]
     Indication: PRODUCT USED FOR UNKNOWN INDICATION
     Route: 065
     Dates: start: 20130515
  5. IBUPROFEN [Concomitant]
     Indication: PAIN
     Route: 065
     Dates: start: 20130530, end: 20130531
  6. LACTULOSE [Concomitant]
     Indication: CONSTIPATION
     Route: 065
     Dates: start: 20130515
  7. PARACETAMOL [Concomitant]
     Indication: PAIN PROPHYLAXIS
     Route: 065
     Dates: start: 20130424, end: 20130531
  8. SALBUTAMOL [Concomitant]
     Indication: PRODUCT USED FOR UNKNOWN INDICATION
     Route: 065
     Dates: start: 20130515, end: 20130523
  9. DUODART [Concomitant]
     Indication: BENIGN PROSTATIC HYPERPLASIA
     Route: 065
     Dates: start: 20130515, end: 20130523
  10. DEXAMETHASONE [Concomitant]
     Indication: BRONCHOSPASM
     Route: 065
     Dates: start: 20130507, end: 20130520
  11. BUDESONIDE [Concomitant]
     Indication: PRODUCT USED FOR UNKNOWN INDICATION
     Route: 065
     Dates: start: 20130512, end: 20130523
  12. FUROSEMIDE [Concomitant]
     Indication: PRODUCT USED FOR UNKNOWN INDICATION
     Route: 065
     Dates: start: 20130513, end: 20130515
  13. METOCLOPRAMIDE [Concomitant]
     Indication: PROPHYLAXIS OF NAUSEA AND VOMITING
     Route: 065
     Dates: start: 20130515
  14. RANITIDINE [Concomitant]
     Indication: PAIN PROPHYLAXIS
     Route: 065
     Dates: start: 20130521
  15. OMEPRAZOLE [Concomitant]
     Indication: PAIN PROPHYLAXIS
     Route: 065
     Dates: start: 20130429, end: 20130520
  16. OLMESARTAN [Concomitant]
     Indication: HYPERTENSION
     Route: 065
     Dates: start: 20130523
  17. CLOPIDOGREL [Concomitant]
     Indication: ANGINA PECTORIS
     Route: 065
     Dates: end: 20130517
  18. AMLODIPINE W/ OLMESARTAN [Concomitant]
     Indication: HYPERTENSION
     Route: 065
     Dates: end: 20130523
  19. ZOMETA [Concomitant]
     Indication: PRODUCT USED FOR UNKNOWN INDICATION
     Route: 065
     Dates: start: 20130507
  20. METAMIZOLE [Concomitant]
     Indication: PAIN
     Route: 065
     Dates: start: 20130525, end: 20130527

REACTIONS (3)
  - Vomiting [Recovered/Resolved]
  - Pyrexia [Recovered/Resolved]
  - Dyspepsia [Recovered/Resolved]
